FAERS Safety Report 8234396-X (Version None)
Quarter: 2012Q1

REPORT INFORMATION
  Report Type: 
  Country: None (occurrence: None)
  Receive Date: 20120307
  Receipt Date: 20100720
  Transmission Date: 20120608
  Serious: Yes (Other)
  Sender: FDA-Public Use
  Company Number: PHHY2010US36017

PATIENT
  Age: 81 Year
  Sex: Female

DRUGS (14)
  1. METOPROLOL SUCCINATE [Concomitant]
  2. DIATX (CYANOCOBALAMIN, FOLIC ACID,  PYRIDOXINE) [Concomitant]
  3. PHOSLO [Concomitant]
  4. ZINC SULFATE [Concomitant]
  5. SENSIPAR [Suspect]
     Dosage: 30 MG, ORAL
     Route: 048
     Dates: start: 20091107
  6. LISINOPRIL [Concomitant]
  7. AFINITOR [Suspect]
     Indication: RENAL CELL CARCINOMA
     Dosage: 10 MG, DAILY, ORAL; 10 MG, DAILY, ORAL
     Route: 048
     Dates: start: 20100515, end: 20100520
  8. AFINITOR [Suspect]
     Indication: METASTASES TO LUNG
     Dosage: 10 MG, DAILY, ORAL; 10 MG, DAILY, ORAL
     Route: 048
     Dates: start: 20100515, end: 20100520
  9. AFINITOR [Suspect]
     Indication: RENAL CELL CARCINOMA
     Dosage: 10 MG, DAILY, ORAL; 10 MG, DAILY, ORAL
     Route: 048
     Dates: start: 20100520, end: 20100526
  10. AFINITOR [Suspect]
     Indication: METASTASES TO LUNG
     Dosage: 10 MG, DAILY, ORAL; 10 MG, DAILY, ORAL
     Route: 048
     Dates: start: 20100520, end: 20100526
  11. VITAMIN D [Concomitant]
  12. ASPIRIN [Suspect]
     Dosage: 81 MG, ORAL
     Route: 048
     Dates: start: 20091107
  13. SUTENT [Suspect]
     Dosage: 25 MG, 12.5 MG
  14. SIMVASTATIN [Concomitant]

REACTIONS (7)
  - VOMITING [None]
  - ABDOMINAL DISCOMFORT [None]
  - HAEMORRHAGE [None]
  - FAECES DISCOLOURED [None]
  - NAUSEA [None]
  - DIARRHOEA [None]
  - WEIGHT DECREASED [None]
